FAERS Safety Report 14175754 (Version 1)
Quarter: 2017Q4

REPORT INFORMATION
  Report Type: Spontaneous
  Country: JP (occurrence: JP)
  Receive Date: 20171109
  Receipt Date: 20171109
  Transmission Date: 20180321
  Serious: Yes (Other)
  Sender: FDA-Public Use
  Company Number: PHJP2017JP032645

PATIENT
  Sex: Female

DRUGS (1)
  1. ZOLEDRONATE [Suspect]
     Active Substance: ZOLEDRONIC ACID
     Indication: HYPERCALCAEMIA OF MALIGNANCY
     Dosage: 4 MG, AT AN INTERVAL OF 2-3 WEEKS, 3 DOSES IN TOTAL
     Route: 065

REACTIONS (6)
  - Blood pressure decreased [Recovering/Resolving]
  - Anuria [Unknown]
  - Acute kidney injury [Unknown]
  - Renal tubular acidosis [Recovering/Resolving]
  - Altered state of consciousness [Recovering/Resolving]
  - Metabolic acidosis [Recovering/Resolving]
